FAERS Safety Report 5946563-6 (Version None)
Quarter: 2008Q4

REPORT INFORMATION
  Report Type: 
  Country: None (occurrence: None)
  Receive Date: 20081107
  Receipt Date: 20081107
  Transmission Date: 20090506
  Serious: Yes (Disabling)
  Sender: FDA-Public Use
  Company Number: None

PATIENT
  Age: 68 Year
  Sex: Male
  Weight: 102.0593 kg

DRUGS (1)
  1. LEVAQUIN [Suspect]
     Indication: PROSTATIC SPECIFIC ANTIGEN INCREASED
     Dosage: DAILY PO
     Route: 048
     Dates: start: 19970606, end: 19970613

REACTIONS (2)
  - PAIN IN EXTREMITY [None]
  - TENDONITIS [None]
